FAERS Safety Report 21475607 (Version 2)
Quarter: 2022Q4

REPORT INFORMATION
  Report Type: Spontaneous
  Country: CN (occurrence: CN)
  Receive Date: 20221019
  Receipt Date: 20221031
  Transmission Date: 20230113
  Serious: Yes (Other)
  Sender: FDA-Public Use
  Company Number: CN-BIOVITRUM-2022CN11975

PATIENT
  Age: 68 Year
  Sex: Male

DRUGS (9)
  1. DOPTELET [Suspect]
     Active Substance: AVATROMBOPAG MALEATE
     Indication: Thrombocytopenia
     Dosage: 40 MG (20 MG,1 IN 1 D)
     Dates: start: 20220820, end: 20220824
  2. SPIRONOLACTONE [Concomitant]
     Active Substance: SPIRONOLACTONE
     Indication: Polyuria
  3. FUROSEMIDE [Concomitant]
     Active Substance: FUROSEMIDE
     Indication: Polyuria
  4. ENTECAVIR [Concomitant]
     Active Substance: ENTECAVIR
     Indication: Hepatitis B
  5. INSULIN ASPART [Concomitant]
     Active Substance: INSULIN ASPART
     Indication: Diabetes mellitus
  6. INSULIN GLARGINE [Concomitant]
     Active Substance: INSULIN GLARGINE
     Indication: Diabetes mellitus
  7. SILIBININ [Concomitant]
     Active Substance: SILIBININ
     Indication: Hepatitis B
  8. GANSUKELI [Concomitant]
     Indication: Hepatitis B
  9. HUMAN ALBUMIN INJECTION [Concomitant]
     Indication: Hypoalbuminaemia

REACTIONS (3)
  - Portal vein thrombosis [Not Recovered/Not Resolved]
  - Hypoalbuminaemia [Recovered/Resolved]
  - Blood bilirubin increased [Not Recovered/Not Resolved]

NARRATIVE: CASE EVENT DATE: 20220831
